FAERS Safety Report 5398190-X (Version None)
Quarter: 2007Q3

REPORT INFORMATION
  Report Type: 
  Country: None (occurrence: None)
  Receive Date: 20070726
  Receipt Date: 20070716
  Transmission Date: 20080115
  Serious: Yes (Hospitalization)
  Sender: FDA-Public Use
  Company Number: CH-PFIZER INC-2007039351

PATIENT
  Sex: Male
  Weight: 77 kg

DRUGS (6)
  1. LYRICA [Suspect]
     Indication: NEURALGIA
     Route: 048
     Dates: start: 20061106, end: 20070226
  2. LYRICA [Suspect]
     Indication: POST HERPETIC NEURALGIA
  3. AMLODIPINE [Concomitant]
     Route: 048
  4. ALL OTHER THERAPEUTIC PRODUCTS [Concomitant]
     Route: 048
  5. PANTOPRAZOLE SODIUM [Concomitant]
     Route: 048
  6. LOZOL [Concomitant]

REACTIONS (3)
  - ILL-DEFINED DISORDER [None]
  - PARALYSIS [None]
  - URINARY RETENTION [None]
